FAERS Safety Report 8613974-X (Version None)
Quarter: 2012Q3

REPORT INFORMATION
  Report Type: 
  Country: None (occurrence: None)
  Receive Date: 20120823
  Receipt Date: 20120820
  Transmission Date: 20120928
  Serious: No
  Sender: FDA-Public Use
  Company Number: US-PFIZER INC-2012204039

PATIENT
  Age: 14 Year
  Sex: Male
  Weight: 65.76 kg

DRUGS (3)
  1. TOPAMAX [Concomitant]
     Indication: BIPOLAR DISORDER
     Dosage: UNK
  2. MELATONIN [Concomitant]
     Dosage: UNK
  3. GEODON [Suspect]
     Indication: BIPOLAR DISORDER
     Dosage: 80 MG, 1X/DAY
     Route: 048
     Dates: start: 20050101

REACTIONS (2)
  - SLEEP DISORDER [None]
  - THERAPEUTIC RESPONSE UNEXPECTED [None]
